FAERS Safety Report 19425984 (Version 1)
Quarter: 2021Q2

REPORT INFORMATION
  Report Type: Other
  Country: US (occurrence: US)
  Receive Date: 20210617
  Receipt Date: 20210617
  Transmission Date: 20210717
  Serious: Yes (Hospitalization)
  Sender: FDA-Public Use
  Company Number: US-APOTEX-2021AP011599

PATIENT
  Age: 10 Year
  Sex: Male

DRUGS (4)
  1. GUANFACINE EXTENDED RELEASE TABLET [Suspect]
     Active Substance: GUANFACINE
     Indication: ATTENTION DEFICIT HYPERACTIVITY DISORDER
     Dosage: UNK, QD
     Route: 065
  2. ZYRTEC [Concomitant]
     Active Substance: CETIRIZINE HYDROCHLORIDE
     Indication: HYPERSENSITIVITY
     Dosage: UNK, PRN
     Route: 065
  3. FOCALIN [Concomitant]
     Active Substance: DEXMETHYLPHENIDATE HYDROCHLORIDE
     Indication: ATTENTION DEFICIT HYPERACTIVITY DISORDER
     Dosage: UNK, 1 TO 2X  QD
     Route: 065
  4. ZOLOFT [Concomitant]
     Active Substance: SERTRALINE HYDROCHLORIDE
     Indication: ANXIETY
     Dosage: UNK, QD
     Route: 065

REACTIONS (6)
  - Cyanosis [Recovered/Resolved]
  - Recalled product administered [Unknown]
  - Dizziness [Recovered/Resolved]
  - Sedation [Recovered/Resolved]
  - Product contamination chemical [Unknown]
  - Oxygen saturation decreased [Recovered/Resolved]
